FAERS Safety Report 8112227-6 (Version None)
Quarter: 2012Q1

REPORT INFORMATION
  Report Type: 
  Country: None (occurrence: None)
  Receive Date: 20120203
  Receipt Date: 20120201
  Transmission Date: 20120608
  Serious: No
  Sender: FDA-Public Use
  Company Number: US-PFIZER INC-2012028647

PATIENT
  Sex: Female
  Weight: 57.596 kg

DRUGS (5)
  1. ZOCOR [Suspect]
     Dosage: 80 MG, DAILY
     Route: 048
     Dates: end: 20030101
  2. LIPITOR [Suspect]
     Indication: BLOOD CHOLESTEROL INCREASED
     Dosage: 80 MG, DAILY
     Route: 048
     Dates: start: 20010101, end: 20020101
  3. LIPITOR [Suspect]
     Dosage: 80 MG DAILY
     Route: 048
     Dates: start: 20040101
  4. CLARITIN [Concomitant]
     Indication: APPETITE DISORDER
     Dosage: UNK
     Route: 048
  5. ZOCOR [Suspect]
     Indication: BLOOD CHOLESTEROL INCREASED
     Dosage: 60 MG, DAILY
     Route: 048
     Dates: start: 20020101

REACTIONS (1)
  - FOOD ALLERGY [None]
